FAERS Safety Report 8158473-7 (Version None)
Quarter: 2012Q1

REPORT INFORMATION
  Report Type: 
  Country: None (occurrence: None)
  Receive Date: 20120223
  Receipt Date: 20120220
  Transmission Date: 20120608
  Serious: No
  Sender: FDA-Public Use
  Company Number: US-PFIZER INC-2012044745

PATIENT
  Sex: Male
  Weight: 82 kg

DRUGS (4)
  1. CLOBETASOL [Concomitant]
     Indication: PSORIASIS
     Dosage: UNK
  2. ADVIL PM [Suspect]
     Indication: MYALGIA
     Dosage: UNK, AS NEEDED
     Route: 048
  3. DOVONEX [Concomitant]
     Indication: PSORIASIS
     Dosage: UNK
  4. ADVIL PM [Suspect]
     Indication: PAIN

REACTIONS (4)
  - BODY HEIGHT DECREASED [None]
  - WHITE BLOOD CELL COUNT INCREASED [None]
  - URTICARIA [None]
  - BLISTER [None]
